FAERS Safety Report 5347858-X (Version None)
Quarter: 2007Q2

REPORT INFORMATION
  Report Type: 
  Country: None (occurrence: None)
  Receive Date: 20070606
  Receipt Date: 20070531
  Transmission Date: 20071010
  Serious: Yes (Hospitalization)
  Sender: FDA-Public Use
  Company Number: NL-BRISTOL-MYERS SQUIBB COMPANY-13240601

PATIENT
  Age: 37 Year
  Sex: Male

DRUGS (3)
  1. CETUXIMAB [Suspect]
     Indication: SQUAMOUS CELL CARCINOMA
     Dosage: INTERRUPTED ON 17-OCT-2005.  RESTARTED ON 07-NOV-2005.
     Route: 041
     Dates: start: 20050926
  2. CISPLATIN [Suspect]
     Indication: SQUAMOUS CELL CARCINOMA
     Dosage: WITHDRAWN ON 17-OCT-2005.
     Route: 042
     Dates: start: 20050926
  3. FLUOROURACIL [Suspect]
     Indication: SQUAMOUS CELL CARCINOMA
     Route: 042
     Dates: start: 20050926

REACTIONS (2)
  - BLOOD CREATININE INCREASED [None]
  - DEHYDRATION [None]
